FAERS Safety Report 8358810-4 (Version None)
Quarter: 2012Q2

REPORT INFORMATION
  Report Type: 
  Country: None (occurrence: None)
  Receive Date: 20120514
  Receipt Date: 20120502
  Transmission Date: 20120825
  Serious: Yes (Other)
  Sender: FDA-Public Use
  Company Number: BR-BRISTOL-MYERS SQUIBB COMPANY-16573941

PATIENT
  Age: 68 Year
  Sex: Female
  Weight: 67 kg

DRUGS (7)
  1. QUESTRAN LIGHT [Suspect]
     Indication: DIARRHOEA
     Dosage: REDUCED TO 1/2 ENVELOPE DAILY
     Route: 048
  2. LEVOTHYROXINE SODIUM [Concomitant]
     Dosage: ABOUT 15 YEARS AGO
  3. METFORMIN HCL [Concomitant]
     Dosage: FOR 10 YEARS
  4. RANITIDINE [Concomitant]
     Dates: start: 20120301
  5. VITAMIN B6 [Concomitant]
     Dates: start: 20120301
  6. PAPAVERINE [Concomitant]
     Dates: start: 20120301
  7. SOMALIUM [Concomitant]
     Dosage: FOR 10 YEARS

REACTIONS (9)
  - MEDICATION ERROR [None]
  - BACK PAIN [None]
  - WEIGHT DECREASED [None]
  - INTERVERTEBRAL DISC PROTRUSION [None]
  - CONSTIPATION [None]
  - LABYRINTHITIS [None]
  - FALL [None]
  - POLYP [None]
  - SPINAL FRACTURE [None]
